FAERS Safety Report 25716233 (Version 2)
Quarter: 2025Q4

REPORT INFORMATION
  Report Type: Spontaneous
  Country: US (occurrence: US)
  Receive Date: 20250822
  Receipt Date: 20251016
  Transmission Date: 20260117
  Serious: Yes (Other)
  Sender: NOVO NORDISK
  Company Number: US-NOVOPROD-1500801

PATIENT
  Sex: Male

DRUGS (2)
  1. OZEMPIC [Suspect]
     Active Substance: SEMAGLUTIDE
     Dosage: 0.5 MG
  2. OZEMPIC [Suspect]
     Active Substance: SEMAGLUTIDE
     Indication: Product used for unknown indication
     Dosage: 0.25 MG
     Dates: start: 20250807

REACTIONS (5)
  - Pain [Not Recovered/Not Resolved]
  - Memory impairment [Recovered/Resolved]
  - Unevaluable event [Unknown]
  - Diarrhoea [Recovered/Resolved]
  - Fatigue [Recovered/Resolved]
